FAERS Safety Report 21926681 (Version 1)
Quarter: 2023Q1

REPORT INFORMATION
  Report Type: Spontaneous
  Country: IT (occurrence: IT)
  Receive Date: 20230130
  Receipt Date: 20230130
  Transmission Date: 20230418
  Serious: Yes (Other)
  Sender: FDA-Public Use
  Company Number: IT-002147023-NVSC2022IT293453

PATIENT
  Sex: Female

DRUGS (1)
  1. IMATINIB [Suspect]
     Active Substance: IMATINIB
     Indication: Chronic myeloid leukaemia
     Dosage: UNK
     Route: 065
     Dates: start: 20220303, end: 20220712

REACTIONS (6)
  - Bone marrow failure [Unknown]
  - Pancytopenia [Unknown]
  - Drug resistance [Unknown]
  - Myalgia [Unknown]
  - Rash [Unknown]
  - Fluid retention [Unknown]
